FAERS Safety Report 19676007 (Version 4)
Quarter: 2023Q1

REPORT INFORMATION
  Report Type: Report from Study
  Country: US (occurrence: US)
  Receive Date: 20210809
  Receipt Date: 20230220
  Transmission Date: 20230417
  Serious: Yes (Other)
  Sender: FDA-Public Use
  Company Number: NVSC2021US172271

PATIENT
  Age: 52 Year
  Sex: Female

DRUGS (2)
  1. KESIMPTA [Suspect]
     Active Substance: OFATUMUMAB
     Indication: Multiple sclerosis
     Dosage: 20 MG, QMO
     Route: 058
     Dates: start: 20210715
  2. KESIMPTA [Suspect]
     Active Substance: OFATUMUMAB
     Dosage: UNK (START DATE: 2 WEEKS AGO)
     Route: 065

REACTIONS (5)
  - Cerebrovascular accident [Recovering/Resolving]
  - Hemiplegia [Unknown]
  - Insomnia [Recovering/Resolving]
  - Ear infection [Recovering/Resolving]
  - Rhinorrhoea [Not Recovered/Not Resolved]

NARRATIVE: CASE EVENT DATE: 20210701
